FAERS Safety Report 5121025-7 (Version None)
Quarter: 2006Q4

REPORT INFORMATION
  Report Type: 
  Country: None (occurrence: None)
  Receive Date: 20061005
  Receipt Date: 20061002
  Transmission Date: 20070319
  Serious: Yes (Other)
  Sender: FDA-Public Use
  Company Number: GB-MERCK-0610GBR00013

PATIENT
  Age: 56 Year
  Sex: Male

DRUGS (3)
  1. ZOCOR [Suspect]
     Indication: BLOOD CHOLESTEROL INCREASED
     Route: 048
     Dates: start: 20060501, end: 20060823
  2. ASPIRIN [Suspect]
     Indication: ANTICOAGULANT THERAPY
     Route: 048
     Dates: start: 20060501, end: 20060823
  3. ACETAMINOPHEN [Concomitant]
     Indication: HEADACHE
     Route: 048

REACTIONS (4)
  - ABDOMINAL MASS [None]
  - ABDOMINAL PAIN [None]
  - FLATULENCE [None]
  - NAUSEA [None]
